FAERS Safety Report 7959498-4 (Version None)
Quarter: 2011Q4

REPORT INFORMATION
  Report Type: 
  Country: None (occurrence: None)
  Receive Date: 20111206
  Receipt Date: 20111130
  Transmission Date: 20120403
  Serious: No
  Sender: FDA-Public Use
  Company Number: US-PFIZER INC-2011292453

PATIENT
  Sex: Male

DRUGS (1)
  1. NORVASC [Suspect]
     Dosage: 10 MG, 1X/DAY

REACTIONS (1)
  - DRUG INEFFECTIVE [None]
